FAERS Safety Report 4752588-9 (Version None)
Quarter: 2005Q3

REPORT INFORMATION
  Report Type: 
  Country: None (occurrence: None)
  Receive Date: 20050824
  Receipt Date: 20050811
  Transmission Date: 20060218
  Serious: Yes (Other)
  Sender: FDA-Public Use
  Company Number: 2005114964

PATIENT
  Age: 68 Year
  Sex: Male
  Weight: 53.5244 kg

DRUGS (5)
  1. CELEBREX [Suspect]
     Indication: PAIN
     Dosage: (200 MG, 1 AS NECESSARY), ORAL
     Route: 048
  2. ATARAX [Concomitant]
  3. GLUCOSAMINE W/CHONDROITIN SULFATES (ASCORBIC ACID, CHONDROITIN SULFATE [Concomitant]
  4. ALL OTHER THERAPEUTIC PRODUCTS (ALL OTHER THERAPEUTIC PRODUCTS) [Concomitant]
  5. VITAMINS (VITAMINS) [Concomitant]

REACTIONS (2)
  - ARTHRITIS [None]
  - RASH PRURITIC [None]
